FAERS Safety Report 7274812-3 (Version None)
Quarter: 2011Q1

REPORT INFORMATION
  Report Type: 
  Country: None (occurrence: None)
  Receive Date: 20110204
  Receipt Date: 20110124
  Transmission Date: 20110831
  Serious: Yes (Other)
  Sender: FDA-Public Use
  Company Number: ES-SANOFI-AVENTIS-2011SA004740

PATIENT
  Sex: Female

DRUGS (6)
  1. SINTROM [Concomitant]
  2. MULTAQ [Suspect]
     Indication: ATRIAL FIBRILLATION
     Route: 048
     Dates: start: 20100101
  3. ALL OTHER THERAPEUTIC PRODUCTS [Concomitant]
  4. SEGURIL [Concomitant]
  5. ATENOLOL [Concomitant]
  6. NITRGLYCERIN TRANSDERMAL SYSTEM [Concomitant]

REACTIONS (6)
  - EYELID OEDEMA [None]
  - OEDEMA PERIPHERAL [None]
  - FACE OEDEMA [None]
  - SWELLING FACE [None]
  - ANGIOEDEMA [None]
  - SWELLING [None]
